FAERS Safety Report 8134347-2 (Version None)
Quarter: 2012Q1

REPORT INFORMATION
  Report Type: 
  Country: None (occurrence: None)
  Receive Date: 20120209
  Receipt Date: 20120130
  Transmission Date: 20120608
  Serious: Yes (Hospitalization, Other)
  Sender: FDA-Public Use
  Company Number: IMP_05729_2012

PATIENT
  Age: 43 Year
  Sex: Female

DRUGS (1)
  1. METFORMIN HCL [Suspect]
     Indication: TYPE 2 DIABETES MELLITUS
     Dosage: NUMBER OF METFORMIN TABLETS, ORAL
     Route: 048

REACTIONS (22)
  - HYPERKALAEMIA [None]
  - BLOOD PRESSURE DECREASED [None]
  - HYPOGLYCAEMIA [None]
  - DEPRESSED LEVEL OF CONSCIOUSNESS [None]
  - BLOOD SODIUM DECREASED [None]
  - BLOOD CHLORIDE DECREASED [None]
  - DECREASED APPETITE [None]
  - HAEMODIALYSIS [None]
  - OVERDOSE [None]
  - CONTINUOUS HAEMODIAFILTRATION [None]
  - LACTIC ACIDOSIS [None]
  - SUICIDE ATTEMPT [None]
  - CIRCULATORY COLLAPSE [None]
  - BLOOD UREA INCREASED [None]
  - OLIGURIA [None]
  - LETHARGY [None]
  - BLOOD PH DECREASED [None]
  - TOXICITY TO VARIOUS AGENTS [None]
  - HYPOTHERMIA [None]
  - BLOOD CREATININE INCREASED [None]
  - METABOLIC ACIDOSIS [None]
  - HAEMODYNAMIC INSTABILITY [None]
